FAERS Safety Report 9324401 (Version 3)
Quarter: 2013Q4

REPORT INFORMATION
  Report Type: Report from Study
  Country: ES (occurrence: ES)
  Receive Date: 20130603
  Receipt Date: 20131223
  Transmission Date: 20140711
  Serious: Yes (Hospitalization)
  Sender: FDA-Public Use
  Company Number: ES-ROCHE-1149357

PATIENT
  Age: 73 Year
  Sex: Female
  Weight: 79 kg

DRUGS (7)
  1. TRASTUZUMAB EMTANSINE [Suspect]
     Indication: BREAST CANCER
     Dosage: LAST DOSE ADMINISTERED ON 16/OCT/2012
     Route: 042
     Dates: start: 20121016
  2. CAPECITABINE [Suspect]
     Indication: BREAST CANCER
     Dosage: DATE OF LAST DOSE 6/MAR/2011
     Route: 048
     Dates: start: 20110303, end: 20110415
  3. LAPATINIB [Suspect]
     Indication: BREAST CANCER
     Dosage: DATE OF LAST DOSE 8/MAR/2011
     Route: 048
     Dates: start: 20110303, end: 20110415
  4. CANDESARTAN [Concomitant]
     Indication: HYPERTENSION
     Route: 065
  5. OMEPRAZOLE [Concomitant]
     Indication: PROPHYLAXIS
     Route: 065
  6. IBUPROFEN [Concomitant]
     Indication: PAIN PROPHYLAXIS
  7. NOCTAMID [Concomitant]
     Indication: INSOMNIA

REACTIONS (3)
  - Pneumonia [Recovered/Resolved]
  - Urinary tract infection [Recovered/Resolved]
  - Thrombocytopenia [Recovered/Resolved]
